FAERS Safety Report 4369145-9 (Version None)
Quarter: 2004Q2

REPORT INFORMATION
  Report Type: 
  Country: None (occurrence: None)
  Receive Date: 20040527
  Receipt Date: 20040514
  Transmission Date: 20050107
  Serious: Yes (Other)
  Sender: FDA-Public Use
  Company Number: 2004033053

PATIENT
  Age: 66 Year
  Sex: Male
  Weight: 90.7194 kg

DRUGS (7)
  1. VIAGRA [Suspect]
     Indication: ERECTILE DYSFUNCTION
     Dosage: 100 MG, ORAL
     Route: 048
  2. ATENOLOL [Concomitant]
  3. CLOPIDOGREL BISULFATE [Concomitant]
  4. ATORVASTATIN (ATORVASTATIN) [Concomitant]
  5. BUPROPION HYDROCHLORIDE [Concomitant]
  6. BECLOMETHASONE DIPROPIONATE [Concomitant]
  7. ACETYLSALICYLIC ACID SRT [Concomitant]

REACTIONS (5)
  - MYALGIA [None]
  - MYOCARDIAL INFARCTION [None]
  - POST PROCEDURAL COMPLICATION [None]
  - POST PROCEDURAL HAEMORRHAGE [None]
  - POST PROCEDURAL PAIN [None]
